FAERS Safety Report 4542819-2 (Version None)
Quarter: 2004Q4

REPORT INFORMATION
  Report Type: 
  Country: None (occurrence: None)
  Receive Date: 20041229
  Receipt Date: 20041221
  Transmission Date: 20050328
  Serious: Yes (Other)
  Sender: FDA-Public Use
  Company Number: 2004105622

PATIENT
  Age: 58 Year
  Sex: Female
  Weight: 86.1834 kg

DRUGS (4)
  1. ROGAINE [Suspect]
     Indication: HYPOTRICHOSIS
     Dosage: TOPICAL
     Route: 061
     Dates: end: 20041101
  2. ETODOLAC [Concomitant]
  3. METOPROLOL TARTRATE [Concomitant]
  4. LISINOPRIL [Concomitant]

REACTIONS (1)
  - PANCREATIC CARCINOMA [None]
